FAERS Safety Report 5018301-5 (Version None)
Quarter: 2006Q2

REPORT INFORMATION
  Report Type: 
  Country: None (occurrence: None)
  Receive Date: 20060530
  Receipt Date: 20060517
  Transmission Date: 20061013
  Serious: Yes (Other)
  Sender: FDA-Public Use
  Company Number: 2006065864

PATIENT
  Sex: Female

DRUGS (2)
  1. DETROL [Suspect]
     Indication: NOCTURIA
     Dosage: 2 MG (1 MG, 2 IN 1 D),
     Dates: start: 20040101
  2. DETROL LA [Suspect]
     Indication: NOCTURIA
     Dosage: 4 MG (2 MG, 2 IN 1 D)

REACTIONS (6)
  - BLINDNESS UNILATERAL [None]
  - BLOOD CHOLESTEROL INCREASED [None]
  - DRUG EFFECT DECREASED [None]
  - GLAUCOMA [None]
  - HYPERTENSION [None]
  - INCORRECT DRUG DOSAGE FORM ADMINISTERED [None]
